FAERS Safety Report 6056338-8 (Version None)
Quarter: 2009Q1

REPORT INFORMATION
  Report Type: 
  Country: None (occurrence: None)
  Receive Date: 20090129
  Receipt Date: 20090122
  Transmission Date: 20090719
  Serious: Yes (Hospitalization)
  Sender: FDA-Public Use
  Company Number: US-BRISTOL-MYERS SQUIBB COMPANY-14481352

PATIENT
  Age: 73 Year
  Sex: Male
  Weight: 66 kg

DRUGS (9)
  1. CARBOPLATIN [Suspect]
     Indication: NON-SMALL CELL LUNG CANCER
     Dosage: 1DF=AUC6 CALVERT D1 OF 21D CYC 1ST CHEMOTHERAPY DATE:10MAY07 LAST DOSE ON:21JUN07 FOR CYCLE 3 D1
     Route: 042
     Dates: start: 20070531, end: 20070531
  2. PACLITAXEL [Suspect]
     Indication: NON-SMALL CELL LUNG CANCER
     Dosage: 1ST CHEMOTHERAPY DATE:10MAY07 LAST DOES ON:21JUN07- CYCLE 3 D 1 31MAY07-DAY 1 OF 21 DAY CYCLE
     Route: 042
     Dates: start: 20070531, end: 20070531
  3. TOPROL-XL [Concomitant]
     Dosage: THERAPY ONGOING
  4. LISINOPRIL [Concomitant]
     Dosage: THERAPY ONGOING
  5. VYTORIN [Concomitant]
     Dosage: THERAPY ONGOING
  6. ASPIRIN [Concomitant]
     Dosage: THERAPY ONGOING
     Dates: start: 20080101
  7. NORVASC [Concomitant]
     Dosage: THERAPY ONGOING
  8. ZOFRAN [Concomitant]
     Dosage: THERAPY ONGOING
  9. NEXIUM [Concomitant]
     Dosage: THERAPY ONGOING

REACTIONS (5)
  - DEHYDRATION [None]
  - NAUSEA [None]
  - RENAL FAILURE ACUTE [None]
  - SYNCOPE [None]
  - VOMITING [None]
